FAERS Safety Report 13059840 (Version 2)
Quarter: 2016Q4

REPORT INFORMATION
  Report Type: Report from Study
  Country: BR (occurrence: BR)
  Receive Date: 20161223
  Receipt Date: 20161223
  Transmission Date: 20170207
  Serious: Yes (Other)
  Sender: FDA-Public Use
  Company Number: BR-BIOGEN-2016BI00289953

PATIENT
  Sex: Female

DRUGS (1)
  1. AVONEX [Suspect]
     Active Substance: INTERFERON BETA-1A
     Indication: MULTIPLE SCLEROSIS
     Route: 065
     Dates: start: 201510

REACTIONS (24)
  - Inflammation [Unknown]
  - Fat tissue decreased [Unknown]
  - Injury [Unknown]
  - Nausea [Not Recovered/Not Resolved]
  - Myalgia [Not Recovered/Not Resolved]
  - Tremor [Recovered/Resolved]
  - Chills [Unknown]
  - Malaise [Not Recovered/Not Resolved]
  - Asthenia [Not Recovered/Not Resolved]
  - Infection [Unknown]
  - Muscle atrophy [Unknown]
  - Injection related reaction [Unknown]
  - Pain in extremity [Unknown]
  - Fatigue [Unknown]
  - Weight decreased [Unknown]
  - Gait disturbance [Unknown]
  - Fear [Unknown]
  - Gastric disorder [Unknown]
  - Decreased immune responsiveness [Not Recovered/Not Resolved]
  - Anxiety [Unknown]
  - Nuclear magnetic resonance imaging abnormal [Unknown]
  - Dysphonia [Unknown]
  - Weight gain poor [Unknown]
  - Headache [Not Recovered/Not Resolved]

NARRATIVE: CASE EVENT DATE: 2016
